FAERS Safety Report 9671421 (Version 1)
Quarter: 2013Q4

REPORT INFORMATION
  Report Type: Spontaneous
  Country: US (occurrence: None)
  Receive Date: 20131105
  Receipt Date: 20131105
  Transmission Date: 20140711
  Serious: Yes (Other)
  Sender: FDA-Public Use
  Company Number: None

PATIENT
  Age: 42 Year
  Sex: Male
  Weight: 79.38 kg

DRUGS (1)
  1. TOBI [Suspect]
     Route: 055

REACTIONS (3)
  - Bronchospasm [None]
  - Haemoptysis [None]
  - Lung disorder [None]
